FAERS Safety Report 5200077-X (Version None)
Quarter: 2007Q1

REPORT INFORMATION
  Report Type: 
  Country: None (occurrence: None)
  Receive Date: 20070105
  Receipt Date: 20070103
  Transmission Date: 20070707
  Serious: Yes (Disabling, Other)
  Sender: FDA-Public Use
  Company Number: US-GLAXOSMITHKLINE-A0632037A

PATIENT
  Age: 72 Year
  Sex: Female
  Weight: 77.3 kg

DRUGS (2)
  1. COREG [Suspect]
     Indication: HYPERTENSION
     Dosage: 6.25MG TWICE PER DAY
     Route: 048
  2. METFORMIN HCL [Concomitant]
     Dosage: 2G TWICE PER DAY

REACTIONS (3)
  - ATRIAL FIBRILLATION [None]
  - CHEST PAIN [None]
  - MALAISE [None]
